FAERS Safety Report 5946392-3 (Version None)
Quarter: 2008Q4

REPORT INFORMATION
  Report Type: 
  Country: None (occurrence: None)
  Receive Date: 20081110
  Receipt Date: 20081105
  Transmission Date: 20090506
  Serious: Yes (Hospitalization)
  Sender: FDA-Public Use
  Company Number: DE-TEVA-160729ISR

PATIENT
  Sex: Male

DRUGS (5)
  1. FLUOROURACIL [Suspect]
     Indication: METASTATIC GASTRIC CANCER
     Dosage: 1500 MG/M2 (ON DAYS 1,8,15,22,29,36 OF 6 WEEK CYCLE)
     Route: 042
     Dates: start: 20070503
  2. FOLINIC ACID [Suspect]
     Indication: METASTATIC GASTRIC CANCER
     Dosage: 200MG/M2 (ON DAYS 1,8,15,22,29,36 OF 6-WEEK CYCLE)
     Route: 042
     Dates: start: 20070503
  3. IRINOTECAN HYDROCHLORIDE [Suspect]
     Indication: METASTATIC GASTRIC CANCER
     Dosage: 80 MG/M2 (ON DAYS 1,8,15,22,29,36 OF 6-WEEK CYCLE)
     Route: 042
     Dates: start: 20070503
  4. CETUXIMAB [Suspect]
     Indication: METASTATIC GASTRIC CANCER
     Route: 040
     Dates: start: 20070503, end: 20070503
  5. CETUXIMAB [Suspect]
     Dosage: 250 MG/M2 (WEEKLY)
     Route: 042
     Dates: start: 20070503

REACTIONS (1)
  - PELVIC VENOUS THROMBOSIS [None]
